FAERS Safety Report 8835723 (Version 8)
Quarter: 2017Q2

REPORT INFORMATION
  Report Type: Report from Study
  Country: TR (occurrence: TR)
  Receive Date: 20121011
  Receipt Date: 20170626
  Transmission Date: 20170830
  Serious: Yes (Hospitalization)
  Sender: FDA-Public Use
  Company Number: PHHO2012TR014604

PATIENT
  Age: 59 Year
  Sex: Female
  Weight: 90 kg

DRUGS (8)
  1. ZESTAT [Concomitant]
     Indication: DEPRESSION
     Dosage: 15 MG, UNK
     Route: 048
     Dates: start: 20120710
  2. AMN107 [Suspect]
     Active Substance: NILOTINIB
     Dosage: UNK
     Route: 048
     Dates: start: 20170609
  3. VASTAREL [Concomitant]
     Active Substance: TRIMETAZIDINE DIHYDROCHLORIDE
     Indication: CARDIOVASCULAR DISORDER
     Dosage: 35 MG, UNK
     Route: 048
     Dates: start: 20121018
  4. VASTAREL [Concomitant]
     Active Substance: TRIMETAZIDINE DIHYDROCHLORIDE
     Indication: CORONARY ARTERY DISEASE
  5. GLIFOR [Concomitant]
     Active Substance: METFORMIN HYDROCHLORIDE
     Indication: DIABETES MELLITUS
     Dosage: 850 MG,
     Route: 048
     Dates: start: 20130614
  6. COVERSYL [Concomitant]
     Active Substance: PERINDOPRIL
     Indication: CORONARY ARTERY DISEASE
     Dosage: 5 MG, UNK
     Route: 048
     Dates: start: 2010
  7. LEVATROM [Concomitant]
     Indication: HYPOTHYROIDISM
     Dosage: 100 UG, UNK
     Route: 048
     Dates: start: 2001
  8. AMN107 [Suspect]
     Active Substance: NILOTINIB
     Indication: CHRONIC MYELOID LEUKAEMIA
     Dosage: 600 MG, BID
     Route: 048
     Dates: start: 20120524, end: 20170505

REACTIONS (3)
  - Angina unstable [Recovered/Resolved]
  - Nephropathy [Recovered/Resolved]
  - Angina unstable [Recovered/Resolved]

NARRATIVE: CASE EVENT DATE: 20140318
